FAERS Safety Report 7466040-3 (Version None)
Quarter: 2011Q2

REPORT INFORMATION
  Report Type: 
  Country: None (occurrence: None)
  Receive Date: 20110509
  Receipt Date: 20110503
  Transmission Date: 20111010
  Serious: Yes (Death)
  Sender: FDA-Public Use
  Company Number: BE-SANOFI-AVENTIS-2011SA025560

PATIENT
  Age: 66 Year
  Sex: Male

DRUGS (11)
  1. DIURETICS [Concomitant]
  2. LANOXIN [Concomitant]
     Indication: ATRIAL FIBRILLATION
  3. BURINEX [Concomitant]
  4. AVELOX [Concomitant]
     Dates: start: 20110418
  5. DOCETAXEL [Suspect]
     Route: 041
     Dates: start: 20110426, end: 20110426
  6. ALDACTONE [Concomitant]
  7. DOCETAXEL [Suspect]
     Route: 041
     Dates: start: 20110426, end: 20110426
  8. DOCETAXEL [Suspect]
     Route: 041
     Dates: start: 20110426, end: 20110426
  9. CISPLATIN [Concomitant]
     Route: 065
     Dates: start: 20110426, end: 20110426
  10. CORDARONE [Concomitant]
     Indication: ATRIAL FIBRILLATION
     Route: 042
     Dates: start: 20110401
  11. DILTIAZEM HCL [Concomitant]
     Indication: ATRIAL FIBRILLATION
     Dates: start: 20110401

REACTIONS (1)
  - CARDIAC ARREST [None]
